FAERS Safety Report 25576501 (Version 1)
Quarter: 2025Q3

REPORT INFORMATION
  Report Type: Spontaneous
  Country: US (occurrence: US)
  Receive Date: 20250718
  Receipt Date: 20250718
  Transmission Date: 20251020
  Serious: No
  Sender: LEO PHARM
  Company Number: US-LEO Pharma-381473

PATIENT
  Age: 38 Year
  Sex: Female
  Weight: 91 kg

DRUGS (4)
  1. ADBRY [Suspect]
     Active Substance: TRALOKINUMAB-LDRM
     Indication: Product used for unknown indication
  2. DUPIXENT [Suspect]
     Active Substance: DUPILUMAB
     Indication: Dermatitis atopic
     Dosage: 4F473A - EXPIRY DATE - 28-FEB-2026?4F516A - EXPIRY DATE - 30-SEP-2026
     Route: 058
  3. DUPIXENT [Suspect]
     Active Substance: DUPILUMAB
     Indication: Dermatitis atopic
  4. Thyrotropin Alfa (Thyrogen) [Concomitant]
     Indication: Product used for unknown indication

REACTIONS (1)
  - Drug intolerance [Unknown]
